FAERS Safety Report 16254208 (Version 4)
Quarter: 2019Q3

REPORT INFORMATION
  Report Type: Spontaneous
  Country: CA (occurrence: CA)
  Receive Date: 20190430
  Receipt Date: 20190929
  Transmission Date: 20191004
  Serious: Yes (Life-Threatening, Hospitalization, Disabling, Other)
  Sender: FDA-Public Use
  Company Number: PHHY2019CA095349

PATIENT
  Age: 49 Year
  Sex: Female

DRUGS (23)
  1. RISPERIDONE. [Suspect]
     Active Substance: RISPERIDONE
     Indication: PRODUCT USED FOR UNKNOWN INDICATION
     Dosage: 6 MG, QD
     Route: 048
  2. VASOPRESSIN. [Suspect]
     Active Substance: VASOPRESSIN
     Indication: BLOOD PRESSURE MEASUREMENT
     Dosage: UNK
     Route: 065
  3. GLUCOSE [Suspect]
     Active Substance: DEXTROSE
     Indication: RESUSCITATION
     Dosage: UNK
     Route: 065
  4. DEXTROSE. [Concomitant]
     Active Substance: DEXTROSE
     Indication: PRODUCT USED FOR UNKNOWN INDICATION
     Route: 065
  5. POTASSIUM CHLORIDE. [Concomitant]
     Active Substance: POTASSIUM CHLORIDE
     Indication: PRODUCT USED FOR UNKNOWN INDICATION
     Dosage: UNK
     Route: 065
  6. GLUCAGON. [Concomitant]
     Active Substance: GLUCAGON
     Indication: PRODUCT USED FOR UNKNOWN INDICATION
     Dosage: UNK
     Route: 065
  7. NOREPINEPHRINE BITARTRATE INJ USP [Suspect]
     Active Substance: NOREPINEPHRINE BITARTRATE
     Indication: BLOOD PRESSURE ABNORMAL
     Dosage: 30 UG, UNK
     Route: 042
  8. RISPERIDONE. [Concomitant]
     Active Substance: RISPERIDONE
     Indication: PRODUCT USED FOR UNKNOWN INDICATION
     Dosage: UNK
     Route: 065
  9. EPINEPHRINE. [Suspect]
     Active Substance: EPINEPHRINE
     Indication: BLOOD PRESSURE MEASUREMENT
     Dosage: 30 UG, UNK
     Route: 065
  10. ACTIVATED CHARCOAL. [Concomitant]
     Active Substance: ACTIVATED CHARCOAL
     Indication: PRODUCT USED FOR UNKNOWN INDICATION
     Dosage: UNK
     Route: 065
  11. POTASSIUM CHLORIDE. [Suspect]
     Active Substance: POTASSIUM CHLORIDE
     Indication: ELECTROLYTE SUBSTITUTION THERAPY
     Dosage: UNK
     Route: 048
  12. AMLODIPINE [Suspect]
     Active Substance: AMLODIPINE BESYLATE
     Indication: INTENTIONAL OVERDOSE
     Dosage: 150 MG, QD
     Route: 048
  13. ESCITALOPRAM [Suspect]
     Active Substance: ESCITALOPRAM OXALATE
     Indication: PRODUCT USED FOR UNKNOWN INDICATION
     Dosage: UNK
     Route: 048
  14. POTASSIUM CHLORIDE. [Suspect]
     Active Substance: POTASSIUM CHLORIDE
     Indication: ELECTROLYTE SUBSTITUTION THERAPY
     Dosage: UNK
     Route: 042
  15. DEXTROSE. [Suspect]
     Active Substance: DEXTROSE
     Indication: RESUSCITATION
     Dosage: UNK
     Route: 042
  16. INSULIN [Concomitant]
     Active Substance: INSULIN NOS
     Indication: PRODUCT USED FOR UNKNOWN INDICATION
     Dosage: UNK
     Route: 065
  17. EPINEPHRINE. [Concomitant]
     Active Substance: EPINEPHRINE
     Indication: PRODUCT USED FOR UNKNOWN INDICATION
     Dosage: UNK
     Route: 065
  18. ESCITALOPRAM [Suspect]
     Active Substance: ESCITALOPRAM OXALATE
     Dosage: 60 MG, QD
     Route: 065
  19. ESCITALOPRAM [Suspect]
     Active Substance: ESCITALOPRAM OXALATE
     Indication: INTENTIONAL OVERDOSE
     Dosage: UNK
     Route: 048
  20. NOREPINEPHRINE. [Concomitant]
     Active Substance: NOREPINEPHRINE
     Indication: PRODUCT USED FOR UNKNOWN INDICATION
     Dosage: 30 UG, UNK
     Route: 042
  21. CALCIUM GLUCONATE. [Concomitant]
     Active Substance: CALCIUM GLUCONATE
     Indication: PRODUCT USED FOR UNKNOWN INDICATION
     Dosage: UNK
     Route: 065
  22. AMLODIPINE [Concomitant]
     Active Substance: AMLODIPINE BESYLATE
     Indication: PRODUCT USED FOR UNKNOWN INDICATION
     Dosage: UNK
     Route: 048
  23. VASOPRESSIN. [Concomitant]
     Active Substance: VASOPRESSIN
     Indication: PRODUCT USED FOR UNKNOWN INDICATION
     Dosage: UNK
     Route: 065

REACTIONS (37)
  - Depressed level of consciousness [Unknown]
  - Optic nerve injury [Unknown]
  - Electrocardiogram U wave present [Unknown]
  - Cardiogenic shock [Unknown]
  - Overdose [Unknown]
  - Cerebral infarction [Unknown]
  - Cytotoxic oedema [Unknown]
  - Hypoglycaemia [Unknown]
  - Hypokalaemia [Unknown]
  - Ischaemia [Unknown]
  - Pulmonary oedema [Unknown]
  - Altered state of consciousness [Unknown]
  - Anuria [Unknown]
  - Blindness cortical [Unknown]
  - Condition aggravated [Unknown]
  - Retinal ischaemia [Unknown]
  - Circulatory collapse [Unknown]
  - Colour blindness [Unknown]
  - Shock [Unknown]
  - Electrocardiogram P wave abnormal [Unknown]
  - Intentional overdose [Unknown]
  - Hypothermia [Unknown]
  - Blindness [Unknown]
  - CSF pressure increased [Unknown]
  - Reversible cerebral vasoconstriction syndrome [Unknown]
  - Visual impairment [Unknown]
  - Electrocardiogram T wave inversion [Unknown]
  - Embolism arterial [Unknown]
  - Hyperdynamic left ventricle [Unknown]
  - Optic atrophy [Unknown]
  - Toxicity to various agents [Unknown]
  - Electrocardiogram T wave amplitude decreased [Unknown]
  - Embolism [Unknown]
  - Renal tubular necrosis [Unknown]
  - Tachycardia [Unknown]
  - Hypotension [Unknown]
  - Electrocardiogram ST segment depression [Unknown]
